FAERS Safety Report 23065764 (Version 3)
Quarter: 2023Q4

REPORT INFORMATION
  Report Type: Spontaneous
  Country: HR (occurrence: HR)
  Receive Date: 20231014
  Receipt Date: 20231118
  Transmission Date: 20240109
  Serious: Yes (Other)
  Sender: FDA-Public Use
  Company Number: HR-BAXTER-2023BAX032289

PATIENT
  Age: 63 Year
  Sex: Male

DRUGS (29)
  1. MELPHALAN [Suspect]
     Active Substance: MELPHALAN
     Indication: Light chain disease
     Dosage: UNK (3 TIMES, AS A PART OF KD+MP REGIMEN (FROM APR-2023 TO JUN-2023))
     Route: 065
     Dates: start: 202304
  2. MELPHALAN [Suspect]
     Active Substance: MELPHALAN
     Indication: Plasma cell myeloma
  3. VELCADE [Suspect]
     Active Substance: BORTEZOMIB
     Indication: Light chain disease
     Dosage: UNK (5 TIMES AS A PART OF VCD REGIMEN (FROM MAR-2022 TO MAY-2022))
     Route: 065
     Dates: start: 202203
  4. VELCADE [Suspect]
     Active Substance: BORTEZOMIB
     Indication: Plasma cell myeloma
  5. CYCLOPHOSPHAMIDE [Suspect]
     Active Substance: CYCLOPHOSPHAMIDE
     Indication: Light chain disease
     Dosage: UNK (5 TIMES AS A PART OF VCD REGIMEN (FROM MAR-2022 TO MAY-2022))
     Route: 065
     Dates: start: 202203, end: 202205
  6. CYCLOPHOSPHAMIDE [Suspect]
     Active Substance: CYCLOPHOSPHAMIDE
     Indication: Plasma cell myeloma
     Dosage: UNK ( 1 TIME AS A PART OF KD+PACE REGIMEN (START DATE: MAR-2023))
     Route: 065
     Dates: start: 202303
  7. DEXAMETHASONE [Suspect]
     Active Substance: DEXAMETHASONE
     Indication: Light chain disease
     Dosage: UNK, 1 TIME AS A PART OF KD+PACE REGIMEN (START DATE: MAR-2023)
     Route: 065
  8. DEXAMETHASONE [Suspect]
     Active Substance: DEXAMETHASONE
     Indication: Plasma cell myeloma
     Dosage: UNK, ( 5 TIMES AS A PART OF VCD REGIMEN (FROM MAR-2022 TO MAY-2022))
     Route: 065
     Dates: start: 202203, end: 202205
  9. DEXAMETHASONE [Suspect]
     Active Substance: DEXAMETHASONE
     Dosage: UNK ( 3 TIMES, AS A PART OF KD+MP REGIMEN (FROM APR-2023 TO JUN-2023))
     Route: 065
     Dates: start: 202204, end: 202206
  10. DEXAMETHASONE [Suspect]
     Active Substance: DEXAMETHASONE
     Dosage: UNK 5 TIMES AS A PART OF DRD REGIMEN (FROM AUG-2022 TO FEB-2023)
     Route: 065
     Dates: start: 202208, end: 202302
  11. DEXAMETHASONE [Suspect]
     Active Substance: DEXAMETHASONE
     Dosage: UNK, 3 TIMES AS A PART OF VAD+ IXAZOMIB REGIMEN (FROM JUN-2023 TO AUG-2023)
     Route: 065
     Dates: start: 202306, end: 202306
  12. PREDNISONE [Suspect]
     Active Substance: PREDNISONE
     Indication: Light chain disease
     Dosage: UNK, 3 TIMES, AS A PART OF KD+MP REGIMEN (FROM APR-2023 TO JUN-2023)
     Route: 065
     Dates: start: 202304
  13. PREDNISONE [Suspect]
     Active Substance: PREDNISONE
     Indication: Plasma cell myeloma
  14. ETOPOSIDE [Suspect]
     Active Substance: ETOPOSIDE
     Indication: Light chain disease
     Dosage: UNK, 1 TIME AS A PART OF KD+PACE REGIMEN (START DATE: MAR-2023)
     Route: 065
     Dates: start: 202303
  15. ETOPOSIDE [Suspect]
     Active Substance: ETOPOSIDE
     Indication: Plasma cell myeloma
  16. IXAZOMIB [Suspect]
     Active Substance: IXAZOMIB
     Indication: Plasma cell myeloma
     Dosage: UNK, 3 TIMES AS A PART OF VAD+ IXAZOMIB REGIMEN (FROM JUN-2023 TO AUG-2023)
     Route: 065
     Dates: start: 202306
  17. IXAZOMIB [Suspect]
     Active Substance: IXAZOMIB
     Indication: Light chain disease
  18. CISPLATIN [Suspect]
     Active Substance: CISPLATIN
     Indication: Plasma cell myeloma
     Dosage: UNK, 1 TIME AS A PART OF KD+PACE REGIMEN (START DATE: MAR-2023)
     Route: 065
     Dates: start: 202303
  19. CISPLATIN [Suspect]
     Active Substance: CISPLATIN
     Indication: Light chain disease
  20. DOXORUBICIN [Suspect]
     Active Substance: DOXORUBICIN
     Indication: Plasma cell myeloma
     Dosage: UNK, 1 TIME AS A PART OF KD+PACE REGIMEN (START DATE: MAR-2023)
     Route: 065
     Dates: start: 202303
  21. DOXORUBICIN [Suspect]
     Active Substance: DOXORUBICIN
     Indication: Light chain disease
     Dosage: UNK, 3 TIMES AS A PART OF VAD+ IXAZOMIB REGIMEN (FROM JUN-2023 TO AUG-2023)
     Route: 065
     Dates: start: 202306, end: 202308
  22. VINCRISTINE [Suspect]
     Active Substance: VINCRISTINE
     Indication: Plasma cell myeloma
     Dosage: UNK, 3 TIMES AS A PART OF VAD+ IXAZOMIB REGIMEN (FROM JUN-2023 TO AUG-2023)
     Route: 065
     Dates: start: 202306
  23. VINCRISTINE [Suspect]
     Active Substance: VINCRISTINE
     Indication: Light chain disease
  24. LENALIDOMIDE [Suspect]
     Active Substance: LENALIDOMIDE
     Indication: Plasma cell myeloma
     Dosage: UNK, 5 TIMES AS A PART OF DRD REGIMEN (FROM AUG-2022 TO FEB-2023)
     Route: 065
     Dates: start: 202208
  25. LENALIDOMIDE [Suspect]
     Active Substance: LENALIDOMIDE
     Indication: Light chain disease
  26. DARZALEX [Suspect]
     Active Substance: DARATUMUMAB
     Indication: Plasma cell myeloma
     Dosage: UNK, 5 TIMES AS A PART OF DRD REGIMEN (FROM AUG-2022 TO FEB-2023)
     Route: 065
     Dates: start: 202208
  27. DARZALEX [Suspect]
     Active Substance: DARATUMUMAB
     Indication: Light chain disease
  28. CARFILZOMIB [Suspect]
     Active Substance: CARFILZOMIB
     Indication: Plasma cell myeloma
     Dosage: UNK, 1 TIME AS A PART OF KD+PACE REGIMEN (START DATE: MAR-2023)
     Route: 065
     Dates: start: 202303
  29. CARFILZOMIB [Suspect]
     Active Substance: CARFILZOMIB
     Indication: Light chain disease
     Dosage: UNK, 3 TIMES, AS A PART OF KD+MP REGIMEN (FROM APR-2023 TO JUN-2023)
     Route: 065
     Dates: start: 202304, end: 202306

REACTIONS (4)
  - Light chain disease [Unknown]
  - Febrile neutropenia [Unknown]
  - Plasma cell myeloma [Unknown]
  - Therapy partial responder [Unknown]
